FAERS Safety Report 12607567 (Version 1)
Quarter: 2016Q3

REPORT INFORMATION
  Report Type: Report from Study
  Country: CA (occurrence: CA)
  Receive Date: 20160729
  Receipt Date: 20160729
  Transmission Date: 20161109
  Serious: Yes (Death)
  Sender: FDA-Public Use
  Company Number: PHHY2016CA104116

PATIENT
  Age: 93 Year
  Sex: Male

DRUGS (4)
  1. ACLASTA [Suspect]
     Active Substance: ZOLEDRONIC ACID
     Route: 065
     Dates: start: 20140902
  2. ACLASTA [Suspect]
     Active Substance: ZOLEDRONIC ACID
     Indication: OSTEOPOROSIS
     Dosage: 5 MG, UNK
     Route: 042
     Dates: start: 20120627
  3. ACLASTA [Suspect]
     Active Substance: ZOLEDRONIC ACID
     Route: 065
     Dates: start: 20130819
  4. ACLASTA [Suspect]
     Active Substance: ZOLEDRONIC ACID
     Route: 065
     Dates: start: 20150904, end: 20150904

REACTIONS (1)
  - Death [Fatal]

NARRATIVE: CASE EVENT DATE: 20160619
